FAERS Safety Report 6085990-6 (Version None)
Quarter: 2009Q1

REPORT INFORMATION
  Report Type: 
  Country: None (occurrence: None)
  Receive Date: 20090218
  Receipt Date: 20090218
  Transmission Date: 20090719
  Serious: No
  Sender: FDA-Public Use
  Company Number: None

PATIENT
  Age: 39 Year
  Sex: Female
  Weight: 71.6683 kg

DRUGS (2)
  1. OCELLA 3MG/0.03MG BARR / BAYER [Suspect]
     Indication: ENDOMETRIOSIS
     Dosage: 1 PILL DAILY PO
     Route: 048
     Dates: start: 20080901, end: 20081101
  2. OCELLA 3MG/0.03MG BARR / BAYER [Suspect]
     Indication: ENDOMETRIOSIS
     Dosage: 1 PILL DAILY PO
     Route: 048
     Dates: start: 20090201

REACTIONS (3)
  - CRYING [None]
  - MOOD SWINGS [None]
  - PRODUCT QUALITY ISSUE [None]
